FAERS Safety Report 10627118 (Version 1)
Quarter: 2014Q4

REPORT INFORMATION
  Report Type: Report from Study
  Country: US (occurrence: US)
  Receive Date: 20141204
  Receipt Date: 20141204
  Transmission Date: 20150529
  Serious: Yes (Other)
  Sender: FDA-Public Use
  Company Number: US-BRISTOL-MYERS SQUIBB COMPANY-21672704

PATIENT
  Sex: Female

DRUGS (17)
  1. ATENOLOL. [Concomitant]
     Active Substance: ATENOLOL
  2. GEMFIBROZIL. [Concomitant]
     Active Substance: GEMFIBROZIL
  3. FLAXSEED [Concomitant]
     Active Substance: FLAX SEED
  4. COENZYME Q10 [Concomitant]
     Active Substance: UBIDECARENONE
  5. DIABETA [Suspect]
     Active Substance: GLYBURIDE
  6. NIACIN. [Concomitant]
     Active Substance: NIACIN
  7. VITAMIN D [Concomitant]
     Active Substance: CHOLECALCIFEROL
  8. LIPITOR [Concomitant]
     Active Substance: ATORVASTATIN CALCIUM
  9. TYLENOL WITH CODEINE [Concomitant]
     Active Substance: ACETAMINOPHEN\CODEINE PHOSPHATE
  10. FLEXERIL [Concomitant]
     Active Substance: CYCLOBENZAPRINE HYDROCHLORIDE
  11. VITAMIN C [Concomitant]
     Active Substance: ASCORBIC ACID
  12. ASPIRIN. [Concomitant]
     Active Substance: ASPIRIN
  13. ZINC [Concomitant]
     Active Substance: ZINC\ZINC CHLORIDE
  14. MULTIVITAMIN [Concomitant]
     Active Substance: VITAMINS
  15. RAMIPRIL. [Concomitant]
     Active Substance: RAMIPRIL
  16. SOY [Concomitant]
  17. CALCIUM [Concomitant]
     Active Substance: CALCIUM

REACTIONS (1)
  - Seizure [Unknown]
